FAERS Safety Report 5824447-1 (Version None)
Quarter: 2008Q3

REPORT INFORMATION
  Report Type: 
  Country: None (occurrence: None)
  Receive Date: 20080728
  Receipt Date: 20080725
  Transmission Date: 20090109
  Serious: Yes (Other)
  Sender: FDA-Public Use
  Company Number: B0529312A

PATIENT
  Age: 73 Year
  Sex: Female

DRUGS (18)
  1. TELZIR [Suspect]
     Indication: HIV INFECTION
     Dosage: 700MG TWICE PER DAY
     Route: 048
     Dates: end: 20080618
  2. ELISOR [Suspect]
     Dosage: 40MG PER DAY
     Route: 048
     Dates: end: 20080616
  3. NORVIR [Suspect]
     Indication: HIV INFECTION
     Dosage: 100MG TWICE PER DAY
     Route: 048
     Dates: end: 20080618
  4. POTASSIUM CHLORIDE [Suspect]
     Route: 048
     Dates: end: 20080618
  5. LASIX [Suspect]
     Indication: DRUG USE FOR UNKNOWN INDICATION
     Dosage: 80MG PER DAY
     Route: 048
     Dates: start: 20080612, end: 20080615
  6. SUSTIVA [Suspect]
     Indication: HIV INFECTION
     Dosage: 600MG PER DAY
     Route: 048
     Dates: end: 20080618
  7. 1 ALFA [Suspect]
     Indication: DRUG USE FOR UNKNOWN INDICATION
     Dosage: .5MCG PER DAY
     Route: 048
     Dates: start: 20080531, end: 20080618
  8. SODIUM BICARBONATE [Suspect]
     Indication: DRUG USE FOR UNKNOWN INDICATION
     Dosage: 1G PER DAY
     Route: 048
     Dates: end: 20080618
  9. STABLON [Suspect]
     Indication: DRUG USE FOR UNKNOWN INDICATION
     Dosage: 12.5MG PER DAY
     Route: 048
     Dates: start: 20080613, end: 20080618
  10. VALACYCLOVIR HCL [Concomitant]
     Indication: INFECTION PROPHYLAXIS
     Dosage: 500MG PER DAY
     Route: 048
  11. BACTRIM [Concomitant]
     Indication: INFECTION PROPHYLAXIS
     Dosage: 1TAB PER DAY
     Route: 048
  12. FLAGYL [Concomitant]
     Indication: DRUG USE FOR UNKNOWN INDICATION
     Route: 048
     Dates: start: 20080528
  13. EUCALCIC [Concomitant]
     Dosage: 2SAC TWICE PER DAY
     Route: 048
     Dates: start: 20080528
  14. MOPRAL [Concomitant]
     Indication: DRUG USE FOR UNKNOWN INDICATION
     Dosage: 20MG PER DAY
     Route: 048
  15. LEVOTHYROX [Concomitant]
     Indication: HYPOTHYROIDISM
     Dosage: 50MCG PER DAY
     Route: 048
  16. CALCIPARINE [Concomitant]
     Indication: DRUG USE FOR UNKNOWN INDICATION
     Dosage: 1UNIT THREE TIMES PER DAY
     Route: 058
     Dates: start: 20080615
  17. AVLOCARDYL [Concomitant]
     Dosage: 40MG THREE TIMES PER DAY
     Route: 048
  18. AZADOSE [Concomitant]
     Indication: DRUG USE FOR UNKNOWN INDICATION
     Dosage: 1200MG TWICE PER DAY
     Route: 048
     Dates: start: 20080522

REACTIONS (4)
  - BLOOD CREATINE PHOSPHOKINASE INCREASED [None]
  - BLOOD CREATINE PHOSPHOKINASE MB INCREASED [None]
  - MYOGLOBIN BLOOD INCREASED [None]
  - RHABDOMYOLYSIS [None]
